FAERS Safety Report 5572336-2 (Version None)
Quarter: 2007Q4

REPORT INFORMATION
  Report Type: 
  Country: None (occurrence: None)
  Receive Date: 20071219
  Receipt Date: 20071204
  Transmission Date: 20080405
  Serious: Yes (Life-Threatening, Hospitalization)
  Sender: FDA-Public Use
  Company Number: 2007S1012867

PATIENT
  Age: 55 Year
  Sex: Male

DRUGS (2)
  1. METFORMIN HYDROCHLORIDE [Suspect]
     Indication: TYPE 2 DIABETES MELLITUS
  2. AVANDIA /01445801/ [Concomitant]

REACTIONS (7)
  - CARDIAC ARREST [None]
  - CARDIAC DISORDER [None]
  - LACTIC ACIDOSIS [None]
  - LOCALISED OEDEMA [None]
  - OEDEMA PERIPHERAL [None]
  - RENAL FAILURE [None]
  - WEIGHT INCREASED [None]
